FAERS Safety Report 12108290 (Version 2)
Quarter: 2016Q2

REPORT INFORMATION
  Report Type: Spontaneous
  Country: JP (occurrence: JP)
  Receive Date: 20160224
  Receipt Date: 20160519
  Transmission Date: 20160815
  Serious: Yes (Death, Life-Threatening, Hospitalization, Other)
  Sender: FDA-Public Use
  Company Number: JP-009507513-1602JPN009595

PATIENT
  Age: 88 Year
  Sex: Male
  Weight: 34 kg

DRUGS (5)
  1. MINOCYCLINE HYDROCHLORIDE. [Suspect]
     Active Substance: MINOCYCLINE HYDROCHLORIDE
     Indication: INFECTIOUS PLEURAL EFFUSION
     Dosage: 100 MG, BID
     Route: 051
     Dates: start: 20160116, end: 20160126
  2. CANCIDAS [Suspect]
     Active Substance: CASPOFUNGIN ACETATE
     Indication: BRONCHOPULMONARY ASPERGILLOSIS
  3. CANCIDAS [Suspect]
     Active Substance: CASPOFUNGIN ACETATE
     Indication: SYSTEMIC CANDIDA
     Dosage: 70 MG, QD
     Route: 041
     Dates: start: 20160105, end: 20160105
  4. CANCIDAS [Suspect]
     Active Substance: CASPOFUNGIN ACETATE
     Indication: SYSTEMIC CANDIDA
     Dosage: 50 MG, QD
     Route: 041
     Dates: start: 20160106, end: 20160125
  5. CANCIDAS [Suspect]
     Active Substance: CASPOFUNGIN ACETATE
     Indication: BRONCHOPULMONARY ASPERGILLOSIS

REACTIONS (7)
  - Neutrophil count increased [Fatal]
  - Myelodysplastic syndrome [Fatal]
  - Pseudomembranous colitis [Recovering/Resolving]
  - Enterococcal bacteraemia [Fatal]
  - Hepatic function abnormal [Recovering/Resolving]
  - C-reactive protein increased [Recovering/Resolving]
  - Pyrexia [Recovering/Resolving]

NARRATIVE: CASE EVENT DATE: 201601
